FAERS Safety Report 7273353-7 (Version None)
Quarter: 2011Q1

REPORT INFORMATION
  Report Type: 
  Country: None (occurrence: None)
  Receive Date: 20110203
  Receipt Date: 20101018
  Transmission Date: 20110831
  Serious: No
  Sender: FDA-Public Use
  Company Number: US-ABBOTT-10P-163-0679995-00

PATIENT
  Sex: Female
  Weight: 56.75 kg

DRUGS (3)
  1. UNKNOWN GLUTEN-FREE VITAMINS [Concomitant]
     Indication: PRODUCT USED FOR UNKNOWN INDICATION
  2. LIOTHYRONINE (GENERIC CYTOMEL) (NON-ABBOTT) [Suspect]
     Indication: AUTOIMMUNE THYROIDITIS
     Dosage: LOT NUMBER AND EXPIRATION DATES WERE UNAVAILABLE. PATIENT THREW OUT PRODUCT.
     Route: 048
  3. SYNTHROID [Suspect]
     Indication: AUTOIMMUNE THYROIDITIS
     Dosage: IN AM LOT NUMBER AND EXPIRATION DATES WERE UNAVAILABLE. PATIENT THREW OUT PRODUCT.
     Route: 048

REACTIONS (3)
  - ANTIGLIADIN ANTIBODY POSITIVE [None]
  - GASTROINTESTINAL PAIN [None]
  - ABDOMINAL PAIN [None]
